FAERS Safety Report 6795100-5 (Version None)
Quarter: 2010Q2

REPORT INFORMATION
  Report Type: 
  Country: None (occurrence: None)
  Receive Date: 20100625
  Receipt Date: 20100623
  Transmission Date: 20101027
  Serious: Yes (Life-Threatening, Hospitalization)
  Sender: FDA-Public Use
  Company Number: PHHY2010ES38764

PATIENT
  Age: 68 Year
  Sex: Female

DRUGS (10)
  1. EXFORGE [Suspect]
     Indication: HYPERTENSION
     Dosage: 10 MG, BID
     Route: 048
     Dates: start: 20090101, end: 20100509
  2. METFORMIN HCL [Suspect]
     Indication: TYPE 2 DIABETES MELLITUS
     Dosage: 850 MG, QD
     Route: 048
     Dates: start: 20080101, end: 20100509
  3. FUROSEMIDE [Suspect]
     Indication: RENAL FAILURE CHRONIC
     Dosage: 40 MG, UNK
     Route: 048
     Dates: start: 20090101, end: 20100509
  4. LEVEMIR [Concomitant]
     Indication: TYPE 2 DIABETES MELLITUS
     Dosage: 28 IU
     Route: 058
     Dates: start: 20081201, end: 20100509
  5. ATROPIN [Concomitant]
  6. LIDOCAINE [Concomitant]
  7. DOPAMINE HYDROCHLORIDE [Concomitant]
  8. SODIUM BICARBONATE [Concomitant]
  9. AMOXICILINA + CLAVULANICO [Concomitant]
  10. DIALYSIS [Concomitant]

REACTIONS (4)
  - COMA [None]
  - LACTIC ACIDOSIS [None]
  - RENAL FAILURE ACUTE [None]
  - WHITE BLOOD CELL COUNT INCREASED [None]
